FAERS Safety Report 4513695-9 (Version None)
Quarter: 2004Q4

REPORT INFORMATION
  Report Type: 
  Country: None (occurrence: None)
  Receive Date: 20041130
  Receipt Date: 20040827
  Transmission Date: 20050328
  Serious: No
  Sender: FDA-Public Use
  Company Number: US-GLAXOSMITHKLINE-A0523785A

PATIENT
  Age: 48 Year
  Sex: Male

DRUGS (4)
  1. WELLBUTRIN XL [Suspect]
     Indication: DEPRESSION
     Dosage: 150MG TWICE PER DAY
     Route: 048
     Dates: end: 20040824
  2. INDERAL [Concomitant]
  3. ZOMIG [Concomitant]
  4. GLUCOSAMINE CHONDROITIN [Concomitant]

REACTIONS (6)
  - AGITATION [None]
  - ANXIETY [None]
  - FEELING HOT [None]
  - HEART RATE INCREASED [None]
  - INSOMNIA [None]
  - THINKING ABNORMAL [None]
